FAERS Safety Report 4481989-1 (Version None)
Quarter: 2004Q4

REPORT INFORMATION
  Report Type: 
  Country: None (occurrence: None)
  Receive Date: 20041022
  Receipt Date: 20041013
  Transmission Date: 20050328
  Serious: Yes (Congenital Anomaly)
  Sender: FDA-Public Use
  Company Number: GB-ABBOTT-04P-167-0277246-00

PATIENT
  Age: 3 Year
  Sex: Male

DRUGS (1)
  1. VALPROIC ACID [Suspect]
     Indication: DRUG EXPOSURE DURING PREGNANCY

REACTIONS (7)
  - DRUG EXPOSURE DURING PREGNANCY [None]
  - EYE DISORDER [None]
  - GROWTH RETARDATION [None]
  - HIGH ARCHED PALATE [None]
  - IMMUNODEFICIENCY [None]
  - MUSCULAR WEAKNESS [None]
  - SPEECH DISORDER [None]
